FAERS Safety Report 5368183-7 (Version None)
Quarter: 2007Q2

REPORT INFORMATION
  Report Type: 
  Country: None (occurrence: None)
  Receive Date: 20070621
  Receipt Date: 20070621
  Transmission Date: 20071010
  Serious: Yes (Disabling)
  Sender: FDA-Public Use
  Company Number: None

PATIENT
  Age: 86 Year
  Sex: Female

DRUGS (4)
  1. LOVENOX [Suspect]
     Indication: PROPHYLAXIS
     Dosage: 30 MG 6H POST SPINAL SQ
     Route: 058
     Dates: start: 20070514
  2. LOVENOX [Suspect]
     Indication: PULMONARY EMBOLISM
     Dosage: 30 MG 6H POST SPINAL SQ
     Route: 058
     Dates: start: 20070514
  3. LOVENOX [Suspect]
     Indication: THROMBOSIS PROPHYLAXIS
     Dosage: 30 MG 6H POST SPINAL SQ
     Route: 058
     Dates: start: 20070514
  4. LOVENOX [Suspect]
     Dosage: 30 MG 18 H POST SPINAL SQ
     Route: 058
     Dates: start: 20070515

REACTIONS (3)
  - HAEMATOMA [None]
  - PARAPLEGIA [None]
  - POST PROCEDURAL COMPLICATION [None]
